FAERS Safety Report 8513921-5 (Version None)
Quarter: 2012Q3

REPORT INFORMATION
  Report Type: 
  Country: None (occurrence: None)
  Receive Date: 20120717
  Receipt Date: 20120627
  Transmission Date: 20120928
  Serious: Yes (Hospitalization)
  Sender: FDA-Public Use
  Company Number: TR-009507513-1207TUR001421

PATIENT

DRUGS (1)
  1. FOSAVANCE TABLET [Suspect]
     Indication: OSTEOPOROSIS
     Dosage: 70 MG / 2800 IU
     Route: 048

REACTIONS (2)
  - NEPHROTIC SYNDROME [None]
  - PLEURAL EFFUSION [None]
